FAERS Safety Report 23807862 (Version 2)
Quarter: 2024Q2

REPORT INFORMATION
  Report Type: Other
  Country: US (occurrence: None)
  Receive Date: 20240502
  Receipt Date: 20240507
  Transmission Date: 20240715
  Serious: Yes (Death, Hospitalization, Other)
  Sender: FDA-Public Use
  Company Number: US-ROCHE-3555317

PATIENT
  Age: 58 Year
  Sex: Male
  Weight: 59.928 kg

DRUGS (3)
  1. ALECENSA [Suspect]
     Active Substance: ALECTINIB HYDROCHLORIDE
     Indication: Lung neoplasm malignant
     Dosage: TAKE 4 CAPSULES BY MOUTH (600MG) TWICE A DAY
     Route: 048
     Dates: start: 20230616, end: 20231116
  2. LORLATINIB [Suspect]
     Active Substance: LORLATINIB
     Indication: Lung neoplasm malignant
     Route: 048
     Dates: start: 20231118, end: 20240330
  3. ELIQUIS [Concomitant]
     Active Substance: APIXABAN
     Indication: Thrombosis
     Dosage: PULMONARY BLOOD CLOT, ONCE OR TWICE A DAY DEPENDING ON PROVIDER
     Route: 048
     Dates: start: 20230412, end: 20240401

REACTIONS (13)
  - Neuroendocrine tumour of the lung [Fatal]
  - Ascites [Recovered/Resolved]
  - Asthenia [Recovered/Resolved]
  - Decreased appetite [Recovered/Resolved]
  - Abdominal distension [Recovered/Resolved]
  - Abdominal discomfort [Recovered/Resolved]
  - Hepatic failure [Recovered/Resolved]
  - Toxicity to various agents [Recovered/Resolved]
  - Neoplasm [Recovered/Resolved]
  - Pain [Recovered/Resolved]
  - Splenomegaly [Recovered/Resolved]
  - Neoplasm progression [Recovered/Resolved]
  - Peripheral swelling [Recovered/Resolved]

NARRATIVE: CASE EVENT DATE: 20231101
